FAERS Safety Report 4598745-6 (Version None)
Quarter: 2005Q1

REPORT INFORMATION
  Report Type: 
  Country: None (occurrence: None)
  Receive Date: 20050304
  Receipt Date: 20050225
  Transmission Date: 20050727
  Serious: Yes (Other)
  Sender: FDA-Public Use
  Company Number: JP-GLAXOSMITHKLINE-B0373317A

PATIENT
  Sex: Male

DRUGS (4)
  1. PAXIL [Suspect]
     Indication: PANIC DISORDER
     Route: 048
     Dates: start: 20030607, end: 20040527
  2. SELECTOL [Suspect]
     Route: 048
  3. BLOPRESS [Suspect]
     Route: 048
  4. DEPROMEL [Concomitant]
     Route: 048
     Dates: start: 20030430

REACTIONS (1)
  - POLYCYTHAEMIA [None]
